FAERS Safety Report 8155699-3 (Version None)
Quarter: 2012Q1

REPORT INFORMATION
  Report Type: 
  Country: None (occurrence: None)
  Receive Date: 20120222
  Receipt Date: 20120213
  Transmission Date: 20120608
  Serious: Yes (Other)
  Sender: FDA-Public Use
  Company Number: JP-JNJFOC-20111101253

PATIENT

DRUGS (1)
  1. FENTANYL-100 [Suspect]
     Indication: BACK PAIN
     Dosage: 25 UG/HR AND 12.5 UG/HR
     Route: 062
     Dates: start: 20111031

REACTIONS (2)
  - SURGERY [None]
  - OFF LABEL USE [None]
